FAERS Safety Report 8510767-9 (Version None)
Quarter: 2012Q3

REPORT INFORMATION
  Report Type: 
  Country: None (occurrence: None)
  Receive Date: 20120709
  Receipt Date: 20120709
  Transmission Date: 20120928
  Serious: Yes (Hospitalization)
  Sender: FDA-Public Use
  Company Number: None

PATIENT
  Sex: Female
  Weight: 92 kg

DRUGS (2)
  1. RITUXIMAB (MOAB C2B8 ANTI CD20, CHIMERIC) [Suspect]
     Dosage: 750 MG
  2. BENDAMUSTINE HYDROCHLORIDE [Suspect]
     Dosage: 360 MG

REACTIONS (3)
  - FLUSHING [None]
  - SWOLLEN TONGUE [None]
  - PULMONARY EMBOLISM [None]
